FAERS Safety Report 25732612 (Version 1)
Quarter: 2025Q3

REPORT INFORMATION
  Report Type: Spontaneous
  Country: CH (occurrence: CH)
  Receive Date: 20250827
  Receipt Date: 20250827
  Transmission Date: 20251020
  Serious: Yes (Life-Threatening, Hospitalization, Other)
  Sender: MERCK SHARP & DOHME LLC
  Company Number: None

PATIENT
  Age: 60 Year
  Sex: Female
  Weight: 116.8 kg

DRUGS (7)
  1. KEYTRUDA [Suspect]
     Active Substance: PEMBROLIZUMAB
     Indication: Adenocarcinoma gastric
     Route: 042
     Dates: start: 20250430, end: 20250523
  2. KANJINTI [Concomitant]
     Active Substance: TRASTUZUMAB-ANNS
     Indication: Adenocarcinoma gastric
     Route: 042
     Dates: start: 20250523, end: 20250523
  3. KANJINTI [Concomitant]
     Active Substance: TRASTUZUMAB-ANNS
     Indication: Adenocarcinoma gastric
     Route: 042
     Dates: start: 20250430, end: 20250430
  4. ELOXATIN [Concomitant]
     Active Substance: OXALIPLATIN
     Indication: Adenocarcinoma gastric
     Route: 042
     Dates: start: 20250402
  5. FLUOROURACIL [Concomitant]
     Active Substance: FLUOROURACIL
     Indication: Adenocarcinoma gastric
     Route: 042
     Dates: start: 20250430, end: 20250430
  6. FLUOROURACIL [Concomitant]
     Active Substance: FLUOROURACIL
     Indication: Adenocarcinoma gastric
     Route: 042
     Dates: start: 20250402, end: 20250402
  7. FLUOROURACIL [Concomitant]
     Active Substance: FLUOROURACIL
     Indication: Adenocarcinoma gastric
     Route: 042
     Dates: start: 20250523, end: 20250523

REACTIONS (3)
  - Pneumonitis [Recovering/Resolving]
  - Hepatitis [Recovering/Resolving]
  - Myositis [Recovering/Resolving]

NARRATIVE: CASE EVENT DATE: 20250530
